FAERS Safety Report 13350638 (Version 1)
Quarter: 2017Q1

REPORT INFORMATION
  Report Type: Spontaneous
  Country: IT (occurrence: IT)
  Receive Date: 20170320
  Receipt Date: 20170320
  Transmission Date: 20170429
  Serious: Yes (Other)
  Sender: FDA-Public Use
  Company Number: IT-SA-2017SA042393

PATIENT
  Age: 64 Year
  Sex: Male
  Weight: 67 kg

DRUGS (8)
  1. ZALTRAP [Suspect]
     Active Substance: ZIV-AFLIBERCEPT
     Indication: RECTAL CANCER
     Route: 042
     Dates: start: 20170220, end: 20170220
  2. IRINOTECAN [Suspect]
     Active Substance: IRINOTECAN
     Indication: RECTAL CANCER
     Route: 042
     Dates: start: 20170109, end: 20170109
  3. FOLINIC ACID [Concomitant]
     Active Substance: LEUCOVORIN
     Route: 042
     Dates: start: 20170109, end: 20170109
  4. FOLINIC ACID [Concomitant]
     Active Substance: LEUCOVORIN
     Route: 042
     Dates: start: 20170221, end: 20170221
  5. ZALTRAP [Suspect]
     Active Substance: ZIV-AFLIBERCEPT
     Indication: RECTAL CANCER
     Route: 042
     Dates: start: 20170109, end: 20170109
  6. FLUOROURACIL. [Suspect]
     Active Substance: FLUOROURACIL
     Indication: RECTAL CANCER
     Route: 042
     Dates: start: 20170109, end: 20170109
  7. IRINOTECAN [Suspect]
     Active Substance: IRINOTECAN
     Indication: RECTAL CANCER
     Route: 042
     Dates: start: 20170220, end: 20170220
  8. FLUOROURACIL. [Suspect]
     Active Substance: FLUOROURACIL
     Indication: RECTAL CANCER
     Route: 042
     Dates: start: 20170221, end: 20170221

REACTIONS (4)
  - Hyperbilirubinaemia [Recovered/Resolved]
  - Abdominal pain [Recovered/Resolved]
  - Cholinergic syndrome [Recovered/Resolved]
  - Diarrhoea [Recovered/Resolved]

NARRATIVE: CASE EVENT DATE: 20170227
